FAERS Safety Report 8428631-2 (Version None)
Quarter: 2012Q2

REPORT INFORMATION
  Report Type: 
  Country: None (occurrence: None)
  Receive Date: 20120606
  Receipt Date: 20120522
  Transmission Date: 20120825
  Serious: Yes (Death, Other)
  Sender: FDA-Public Use
  Company Number: FK201201466

PATIENT
  Age: 69 Year
  Sex: Female

DRUGS (2)
  1. CYCLOPHOSPHAMIDE [Suspect]
     Indication: BREAST CANCER METASTATIC
  2. DOXORUBICIN HCL [Suspect]
     Indication: BREAST CANCER METASTATIC

REACTIONS (12)
  - HEPATIC ENCEPHALOPATHY [None]
  - JAUNDICE [None]
  - PORTAL HYPERTENSION [None]
  - SPLENOMEGALY [None]
  - OEDEMA PERIPHERAL [None]
  - GENERAL PHYSICAL HEALTH DETERIORATION [None]
  - WEIGHT INCREASED [None]
  - ASPARTATE AMINOTRANSFERASE INCREASED [None]
  - BLOOD BILIRUBIN INCREASED [None]
  - ABDOMINAL DISTENSION [None]
  - ALANINE AMINOTRANSFERASE INCREASED [None]
  - CARDIAC CIRRHOSIS [None]
